FAERS Safety Report 11276626 (Version 2)
Quarter: 2015Q3

REPORT INFORMATION
  Report Type: Spontaneous
  Country: US (occurrence: US)
  Receive Date: 20150716
  Receipt Date: 20150901
  Transmission Date: 20151125
  Serious: No
  Sender: FDA-Public Use
  Company Number: CHPA2015US008532

PATIENT
  Sex: Female

DRUGS (2)
  1. VOLTAREN [Suspect]
     Active Substance: DICLOFENAC SODIUM
     Indication: GOUT
     Dosage: 2 TO 4 G, BID
     Route: 061
     Dates: start: 20150506
  2. VOLTAREN [Suspect]
     Active Substance: DICLOFENAC SODIUM
     Indication: INFLAMMATION

REACTIONS (4)
  - Therapeutic response unexpected [Unknown]
  - Product use issue [Unknown]
  - Inappropriate schedule of drug administration [Unknown]
  - Incorrect dose administered [Unknown]

NARRATIVE: CASE EVENT DATE: 20150506
